FAERS Safety Report 5760950-0 (Version None)
Quarter: 2008Q2

REPORT INFORMATION
  Report Type: 
  Country: None (occurrence: None)
  Receive Date: 20080606
  Receipt Date: 20080129
  Transmission Date: 20081010
  Serious: No
  Sender: FDA-Public Use
  Company Number: US-ASTRAZENECA-2008UW02192

PATIENT
  Age: 79 Year
  Sex: Female
  Weight: 54.5 kg

DRUGS (2)
  1. PRILOSEC [Suspect]
     Route: 048
  2. PRILOSEC OTC [Suspect]
     Indication: VOCAL CORD DISORDER
     Route: 048
     Dates: start: 20080122, end: 20080129

REACTIONS (3)
  - DRY SKIN [None]
  - LIP SWELLING [None]
  - PRURITUS [None]
